FAERS Safety Report 5535483-7 (Version None)
Quarter: 2007Q4

REPORT INFORMATION
  Report Type: 
  Country: None (occurrence: None)
  Receive Date: 20071203
  Receipt Date: 20071203
  Transmission Date: 20080405
  Serious: Yes (Life-Threatening, Hospitalization, Other)
  Sender: FDA-Public Use
  Company Number: None

PATIENT
  Age: 6 Year
  Sex: Male
  Weight: 18.1439 kg

DRUGS (2)
  1. RID     BAYER [Suspect]
     Indication: LICE INFESTATION
     Dosage: RECOMMENDED USAGE OF SHAMPOO  1   TRANSDERMAL
     Route: 062
     Dates: start: 20071123, end: 20071123
  2. RID     BAYER [Suspect]
     Indication: PROPHYLAXIS
     Dosage: RECOMMENDED USAGE OF SHAMPOO  1   TRANSDERMAL
     Route: 062
     Dates: start: 20071123, end: 20071123

REACTIONS (3)
  - ANXIETY [None]
  - CONVULSION [None]
  - PAIN [None]
